FAERS Safety Report 8097708 (Version 4)
Quarter: 2012Q4

REPORT INFORMATION
  Report Type: 
  Country: CH (occurrence: CH)
  Receive Date: 20110819
  Receipt Date: 20121012
  Transmission Date: 20130627
  Serious: Yes (Hospitalization, Disabling, Other)
  Sender: FDA-Public Use
  Company Number: CH-CELGENEUS-151-50794-11080684

PATIENT
  Age: 77 Year
  Sex: Female

DRUGS (10)
  1. VIDAZA [Suspect]
     Indication: MYELODYSPLASTIC SYNDROME
     Dosage: 150 Milligram
     Route: 058
     Dates: start: 20110620, end: 20110624
  2. VIDAZA [Suspect]
     Dosage: 50 milligram/sq. meter
     Route: 058
     Dates: start: 20110822, end: 20110826
  3. VIDAZA [Suspect]
     Route: 041
     Dates: start: 20111003, end: 20111223
  4. VIDAZA [Suspect]
     Route: 041
     Dates: start: 20120220, end: 20120224
  5. REVLIMID [Suspect]
     Indication: MYELODYSPLASTIC SYNDROME
     Route: 048
     Dates: start: 201101, end: 201105
  6. TRANSFUSION [Concomitant]
     Indication: DRUG USE FOR UNKNOWN INDICATION
     Route: 041
  7. G-CSF [Concomitant]
     Indication: DRUG USE FOR UNKNOWN INDICATION
     Route: 065
  8. DIGOXIN [Concomitant]
     Indication: ATRIAL FIBRILLATION
     Dosage: .125 Milligram
     Route: 048
  9. METO ZEROK [Concomitant]
     Indication: HYPERTENSION
     Dosage: 150 Milligram
     Route: 048
  10. TORASEM [Concomitant]
     Indication: HYPERTENSION
     Dosage: 5 Milligram
     Route: 048

REACTIONS (7)
  - Agranulocytosis [Recovered/Resolved]
  - Acute febrile neutrophilic dermatosis [Recovered/Resolved]
  - Pancytopenia [Recovered/Resolved]
  - Acute febrile neutrophilic dermatosis [Recovering/Resolving]
  - Urosepsis [Unknown]
  - Cerebrovascular accident [Unknown]
  - General physical health deterioration [Unknown]
